FAERS Safety Report 17191569 (Version 4)
Quarter: 2021Q2

REPORT INFORMATION
  Report Type: Spontaneous
  Country: US (occurrence: US)
  Receive Date: 20191223
  Receipt Date: 20210421
  Transmission Date: 20210716
  Serious: Yes (Other)
  Sender: FDA-Public Use
  Company Number: US-PFIZER INC-2019550133

PATIENT
  Age: 77 Year
  Sex: Female
  Weight: 77.11 kg

DRUGS (1)
  1. XELJANZ [Suspect]
     Active Substance: TOFACITINIB CITRATE
     Indication: RHEUMATOID ARTHRITIS
     Dosage: 5 MG, 2X/DAY (5MG TABLETS BY MOUTH ONE IN THE MORNING AND ONE IN THE EVENING)
     Route: 048
     Dates: start: 2017

REACTIONS (4)
  - Rheumatoid arthritis [Unknown]
  - Choking [Unknown]
  - Confusional state [Unknown]
  - Feeling of despair [Unknown]

NARRATIVE: CASE EVENT DATE: 2020
